FAERS Safety Report 12262361 (Version 18)
Quarter: 2017Q4

REPORT INFORMATION
  Report Type: Report from Study
  Country: CA (occurrence: CA)
  Receive Date: 20160413
  Receipt Date: 20171207
  Transmission Date: 20180320
  Serious: Yes (Hospitalization, Other)
  Sender: FDA-Public Use
  Company Number: CA-ROCHE-1705806

PATIENT
  Age: 43 Year
  Sex: Female
  Weight: 69.46 kg

DRUGS (8)
  1. ACTEMRA [Suspect]
     Active Substance: TOCILIZUMAB
     Route: 042
  2. METHOTREXATE. [Suspect]
     Active Substance: METHOTREXATE
     Indication: PRODUCT USED FOR UNKNOWN INDICATION
     Route: 065
  3. MARVELON [Concomitant]
     Active Substance: DESOGESTREL\ETHINYL ESTRADIOL
  4. ACTEMRA [Suspect]
     Active Substance: TOCILIZUMAB
     Indication: RHEUMATOID ARTHRITIS
     Route: 042
     Dates: start: 20160105
  5. BETADERM (CANADA) [Concomitant]
  6. ACTEMRA [Suspect]
     Active Substance: TOCILIZUMAB
     Route: 042
  7. MOBICOX [Concomitant]
     Active Substance: MELOXICAM
  8. MICRONOR [Suspect]
     Active Substance: NORETHINDRONE
     Indication: VAGINAL HAEMORRHAGE
     Route: 065
     Dates: start: 2016

REACTIONS (28)
  - Headache [Recovered/Resolved]
  - Nausea [Not Recovered/Not Resolved]
  - Ear infection [Not Recovered/Not Resolved]
  - Sinusitis [Not Recovered/Not Resolved]
  - Abdominal pain [Not Recovered/Not Resolved]
  - Heart rate decreased [Unknown]
  - Malaise [Unknown]
  - Ovarian cyst [Not Recovered/Not Resolved]
  - Nasopharyngitis [Recovering/Resolving]
  - Pallor [Not Recovered/Not Resolved]
  - Hot flush [Not Recovered/Not Resolved]
  - Productive cough [Not Recovered/Not Resolved]
  - Cyst [Recovered/Resolved]
  - Tympanic membrane perforation [Unknown]
  - Vertigo [Unknown]
  - Headache [Unknown]
  - Eye irritation [Not Recovered/Not Resolved]
  - Metrorrhagia [Unknown]
  - Abdominal distension [Not Recovered/Not Resolved]
  - Spinal disorder [Not Recovered/Not Resolved]
  - Hypoaesthesia oral [Not Recovered/Not Resolved]
  - Dyspnoea [Not Recovered/Not Resolved]
  - Abdominal pain upper [Not Recovered/Not Resolved]
  - Pyrexia [Unknown]
  - White blood cell count increased [Unknown]
  - Dislocation of vertebra [Unknown]
  - Blood pressure systolic increased [Unknown]
  - Hypoaesthesia [Not Recovered/Not Resolved]

NARRATIVE: CASE EVENT DATE: 20160202
